FAERS Safety Report 6246811-1 (Version None)
Quarter: 2009Q2

REPORT INFORMATION
  Report Type: 
  Country: None (occurrence: None)
  Receive Date: 20090626
  Receipt Date: 20090617
  Transmission Date: 20091009
  Serious: Yes (Other)
  Sender: FDA-Public Use
  Company Number: DE-PFIZER INC-2009228233

PATIENT
  Age: 22 Year

DRUGS (1)
  1. DEPO-CLINOVIR [Suspect]
     Dosage: 150 MG, EVERY 3 MONTHS
     Route: 030
     Dates: start: 20090430

REACTIONS (1)
  - INJECTION SITE ATROPHY [None]
